FAERS Safety Report 6548268-X (Version None)
Quarter: 2010Q1

REPORT INFORMATION
  Report Type: 
  Country: None (occurrence: None)
  Receive Date: 20100124
  Receipt Date: 20090416
  Transmission Date: 20100710
  Serious: No
  Sender: FDA-Public Use
  Company Number: US-ALLERGAN-0905275US

PATIENT
  Sex: Female

DRUGS (3)
  1. RESTASIS [Suspect]
     Indication: DRY EYE
     Dosage: 1 GTT, Q12H
     Route: 047
     Dates: start: 20090301, end: 20090415
  2. PREDNISOLONE ACETATE SUS [Concomitant]
     Indication: EYE IRRITATION
     Dosage: UNK, UNKNOWN
     Route: 047
     Dates: start: 20090301, end: 20090415
  3. CELLUVISC [Concomitant]
     Indication: DRY EYE
     Dosage: 1 GTT, PRN
     Route: 047

REACTIONS (4)
  - EYE PAIN [None]
  - EYELID OEDEMA [None]
  - FOREIGN BODY SENSATION IN EYES [None]
  - VISION BLURRED [None]
